FAERS Safety Report 7986152-5 (Version None)
Quarter: 2011Q4

REPORT INFORMATION
  Report Type: 
  Country: None (occurrence: None)
  Receive Date: 20111216
  Receipt Date: 20111213
  Transmission Date: 20120403
  Serious: Yes (Hospitalization, Other)
  Sender: FDA-Public Use
  Company Number: FR-PFIZER INC-2011302830

PATIENT
  Age: 17 Year
  Sex: Female

DRUGS (10)
  1. TRIPHASIL-21 [Suspect]
     Indication: ORAL CONTRACEPTION
     Dosage: UNK
     Route: 048
     Dates: start: 20110901, end: 20111004
  2. SPASFON [Concomitant]
     Dosage: UNKNOWN
  3. VOGALIB [Concomitant]
     Dosage: UNKNOWN
  4. ZARONTIN [Concomitant]
     Indication: EPILEPSY
     Dosage: UNKNOWN
  5. KEPPRA [Concomitant]
     Indication: EPILEPSY
     Dosage: UNKNOWN
  6. SMECTA ^IPSEN^ [Concomitant]
     Dosage: UNKNOWN
  7. HEPATOUM [Concomitant]
     Dosage: UNKNOWN
  8. ACETAMINOPHEN [Concomitant]
     Dosage: UNKNOWN
  9. ACETAMINOPHEN [Concomitant]
     Dosage: UNKNOWN
  10. URBANYL [Concomitant]
     Indication: EPILEPSY
     Dosage: UNKNOWN

REACTIONS (4)
  - PANCREATITIS ACUTE [None]
  - HYPERTRIGLYCERIDAEMIA [None]
  - CHOLELITHIASIS [None]
  - CHOLANGITIS [None]
